FAERS Safety Report 9548759 (Version 1)
Quarter: 2013Q3

REPORT INFORMATION
  Report Type: Spontaneous
  Country: US (occurrence: None)
  Receive Date: 20130923
  Receipt Date: 20130923
  Transmission Date: 20140515
  Serious: Yes (Life-Threatening, Hospitalization, Disabling, Other)
  Sender: FDA-Public Use
  Company Number: None

PATIENT
  Age: 51 Year
  Sex: Female
  Weight: 62.14 kg

DRUGS (1)
  1. SUBOXONE [Suspect]
     Indication: DRUG WITHDRAWAL MAINTENANCE THERAPY
     Dosage: TAKEN UNDER THE TONGUE
     Route: 060
     Dates: start: 20070912, end: 20130827

REACTIONS (7)
  - Economic problem [None]
  - Fear [None]
  - Malaise [None]
  - Dehydration [None]
  - Drug withdrawal syndrome [None]
  - Hypotension [None]
  - Postural orthostatic tachycardia syndrome [None]
